FAERS Safety Report 17942488 (Version 2)
Quarter: 2020Q2

REPORT INFORMATION
  Report Type: Spontaneous
  Country: CA (occurrence: CA)
  Receive Date: 20200624
  Receipt Date: 20200628
  Transmission Date: 20200714
  Serious: Yes (Hospitalization)
  Sender: FDA-Public Use
  Company Number: CA-CELLTRION INC.-2019CA025731

PATIENT

DRUGS (2)
  1. INFLECTRA [Suspect]
     Active Substance: INFLIXIMAB-DYYB
     Dosage: 400 MG, (EVERY 6 WEEKS)
     Route: 042
     Dates: start: 20200506
  2. INFLECTRA [Suspect]
     Active Substance: INFLIXIMAB-DYYB
     Indication: CROHN^S DISEASE
     Dosage: 400 MG, (EVERY 6 WEEKS)
     Route: 042
     Dates: start: 20190523

REACTIONS (4)
  - Off label use [Unknown]
  - Blood pressure increased [Unknown]
  - Diarrhoea [Unknown]
  - Muscle spasms [Unknown]
